FAERS Safety Report 7341626-5 (Version None)
Quarter: 2011Q1

REPORT INFORMATION
  Report Type: 
  Country: None (occurrence: None)
  Receive Date: 20110228
  Receipt Date: 20110214
  Transmission Date: 20110831
  Serious: Yes (Other)
  Sender: FDA-Public Use
  Company Number: OSCN-NO-1102S-0083

PATIENT
  Age: 46 Year
  Sex: Female

DRUGS (2)
  1. XYLOCAINE W/ EPINEPHRENE [Suspect]
  2. OMNISCAN [Suspect]
     Indication: PRODUCT USED FOR UNKNOWN INDICATION
     Dosage: SINGLE DOSE

REACTIONS (5)
  - NAUSEA [None]
  - FATIGUE [None]
  - DIZZINESS [None]
  - HEADACHE [None]
  - NERVOUSNESS [None]
